FAERS Safety Report 4292783-9 (Version None)
Quarter: 2004Q1

REPORT INFORMATION
  Report Type: 
  Country: None (occurrence: None)
  Receive Date: 20040210
  Receipt Date: 20040126
  Transmission Date: 20041129
  Serious: Yes (Hospitalization, Other)
  Sender: FDA-Public Use
  Company Number: DE-SHR-03-018817

PATIENT
  Age: 63 Year
  Sex: Male
  Weight: 86 kg

DRUGS (6)
  1. CAMPATH [Suspect]
     Indication: CHRONIC LYMPHOCYTIC LEUKAEMIA
     Dosage: 6 CYCLES
     Dates: start: 20030601, end: 20031001
  2. FLUDARA [Suspect]
     Indication: CHRONIC LEUKAEMIA
     Dosage: 6 CYCLES
     Dates: start: 20030601, end: 20031001
  3. CO-TRIMOXAZOLE (SULFAMETHOXAZOLE, TRIMETHOPRIM) [Suspect]
     Indication: INFECTION PROPHYLAXIS
     Dosage: ORAL
     Route: 048
     Dates: start: 20030101, end: 20031101
  4. VITAMIN B COMPLEX CAP [Suspect]
     Indication: POLYNEUROPATHY
     Dosage: ORAL
     Route: 048
     Dates: start: 20031101, end: 20031101
  5. CYCLOPHOSPHAMIDE [Concomitant]
  6. VALTREX [Concomitant]

REACTIONS (8)
  - ATRIAL FIBRILLATION [None]
  - BIOPSY SKIN ABNORMAL [None]
  - EXANTHEM [None]
  - LUNG INFILTRATION [None]
  - PANCYTOPENIA [None]
  - PRURITUS GENERALISED [None]
  - PYREXIA [None]
  - RASH MACULO-PAPULAR [None]
